FAERS Safety Report 26090546 (Version 2)
Quarter: 2025Q4

REPORT INFORMATION
  Report Type: Spontaneous
  Country: US (occurrence: US)
  Receive Date: 20251126
  Receipt Date: 20251215
  Transmission Date: 20260117
  Serious: No
  Sender: AMGEN
  Company Number: US-AMGEN-USASP2025231724

PATIENT
  Age: 58 Year
  Sex: Male

DRUGS (1)
  1. AMJEVITA [Suspect]
     Active Substance: ADALIMUMAB-ATTO
     Indication: Crohn^s disease
     Dosage: 40 MILLIGRAM PER 0.4 MILLILITRE, Q2WK
     Route: 065
     Dates: start: 202410

REACTIONS (4)
  - Injection site haemorrhage [Unknown]
  - Device difficult to use [Unknown]
  - Accidental exposure to product [Unknown]
  - Incorrect dose administered by device [Unknown]

NARRATIVE: CASE EVENT DATE: 20251119
